FAERS Safety Report 7605568-X (Version None)
Quarter: 2011Q3

REPORT INFORMATION
  Report Type: 
  Country: None (occurrence: None)
  Receive Date: 20110713
  Receipt Date: 20110630
  Transmission Date: 20111222
  Serious: Yes (Hospitalization, Other)
  Sender: FDA-Public Use
  Company Number: US-BAYER-201029624NA

PATIENT
  Age: 22 Year
  Sex: Female
  Weight: 63.492 kg

DRUGS (8)
  1. YASMIN [Suspect]
     Indication: PREMENSTRUAL SYNDROME
  2. HYOSCYAMINE [Concomitant]
     Indication: ABDOMINAL PAIN
     Dosage: 0.125 MG, PRN
     Dates: start: 20070829, end: 20080318
  3. NITROFURANTOIN [Concomitant]
     Dosage: 100 MG, UNK
  4. DROSPIRENONE AND ETHINYL ESTRADIOL [Suspect]
     Indication: PREMENSTRUAL SYNDROME
  5. BYSTOLIC [Concomitant]
  6. YASMIN [Suspect]
     Indication: CONTRACEPTION
     Dosage: UNK
     Route: 048
     Dates: start: 20060101, end: 20080101
  7. FLUCONAZOLE [Concomitant]
     Dosage: 150 MG, QD
     Route: 048
     Dates: start: 20070829, end: 20091228
  8. DROSPIRENONE AND ETHINYL ESTRADIOL [Suspect]
     Indication: CONTRACEPTION
     Dosage: UNK
     Route: 048
     Dates: start: 20080101, end: 20090801

REACTIONS (10)
  - NEPHROLITHIASIS [None]
  - PAIN [None]
  - ANXIETY [None]
  - FATIGUE [None]
  - SYNCOPE [None]
  - ANHEDONIA [None]
  - ASTHENIA [None]
  - GENERAL PHYSICAL HEALTH DETERIORATION [None]
  - ARRHYTHMIA [None]
  - SINUS TACHYCARDIA [None]
